FAERS Safety Report 21381613 (Version 1)
Quarter: 2022Q3

REPORT INFORMATION
  Report Type: Spontaneous
  Country: US (occurrence: None)
  Receive Date: 20220926
  Receipt Date: 20220926
  Transmission Date: 20221027
  Serious: Yes (Other)
  Sender: FDA-Public Use
  Company Number: None

PATIENT
  Age: 34 Year
  Sex: Female
  Weight: 81 kg

DRUGS (1)
  1. SLYND [Suspect]
     Active Substance: DROSPIRENONE
     Indication: Contraception
     Dates: start: 20220909, end: 20220925

REACTIONS (4)
  - Acne [None]
  - Skin exfoliation [None]
  - Dry skin [None]
  - Hypersensitivity [None]

NARRATIVE: CASE EVENT DATE: 20220924
